FAERS Safety Report 6699305-3 (Version None)
Quarter: 2010Q2

REPORT INFORMATION
  Report Type: 
  Country: None (occurrence: None)
  Receive Date: 20100427
  Receipt Date: 20100415
  Transmission Date: 20101027
  Serious: Yes (Other)
  Sender: FDA-Public Use
  Company Number: US-ELI_LILLY_AND_COMPANY-US201004004233

PATIENT
  Sex: Male

DRUGS (4)
  1. ZYPREXA [Suspect]
     Dosage: UNK, UNK
     Dates: start: 20100301, end: 20100101
  2. ROZEREM [Concomitant]
     Dates: start: 20100317
  3. ZOLOFT [Concomitant]
  4. CONCERTA [Concomitant]

REACTIONS (9)
  - APHONIA [None]
  - DYSPHAGIA [None]
  - DYSTONIA [None]
  - MUSCLE SPASMS [None]
  - PHARYNGEAL OEDEMA [None]
  - TONGUE DISORDER [None]
  - TORTICOLLIS [None]
  - TRANSIENT GLOBAL AMNESIA [None]
  - TRISMUS [None]
